FAERS Safety Report 5151418-3 (Version None)
Quarter: 2006Q4

REPORT INFORMATION
  Report Type: 
  Country: None (occurrence: None)
  Receive Date: 20061115
  Receipt Date: 20061101
  Transmission Date: 20070319
  Serious: Yes (Other)
  Sender: FDA-Public Use
  Company Number: GB-ELI_LILLY_AND_COMPANY-GB200611000261

PATIENT
  Age: 60 Year
  Sex: Male

DRUGS (1)
  1. FLUOXETINE [Suspect]
     Indication: DEPRESSION
     Dates: start: 19900101

REACTIONS (3)
  - AGITATION [None]
  - HALLUCINATION [None]
  - RESTLESSNESS [None]
